FAERS Safety Report 19207403 (Version 1)
Quarter: 2021Q2

REPORT INFORMATION
  Report Type: Report from Study
  Country: US (occurrence: US)
  Receive Date: 20210503
  Receipt Date: 20210503
  Transmission Date: 20210717
  Serious: Yes (Life-Threatening, Hospitalization, Other)
  Sender: FDA-Public Use
  Company Number: US-BRISTOL-MYERS SQUIBB COMPANY-BMS-2021-042653

PATIENT
  Age: 77 Year
  Sex: Male
  Weight: 95.25 kg

DRUGS (3)
  1. NIVOLUMAB [Suspect]
     Active Substance: NIVOLUMAB
     Indication: LIPOSARCOMA
     Dosage: 240 MILLIGRAM, Q2WK
     Route: 042
     Dates: start: 20210311
  2. IPILIMUMAB [Suspect]
     Active Substance: IPILIMUMAB
     Indication: LIPOSARCOMA
     Dosage: 101 MILLIGRAM, Q2WK
     Route: 042
     Dates: start: 20210311
  3. TRABECTEDIN [Suspect]
     Active Substance: TRABECTEDIN
     Indication: LIPOSARCOMA
     Dosage: 2.1 MILLIGRAM, Q3WK
     Route: 042
     Dates: start: 20210225

REACTIONS (1)
  - Myasthenia gravis [Not Recovered/Not Resolved]

NARRATIVE: CASE EVENT DATE: 20210423
